FAERS Safety Report 7597836-5 (Version None)
Quarter: 2011Q3

REPORT INFORMATION
  Report Type: 
  Country: None (occurrence: None)
  Receive Date: 20110708
  Receipt Date: 20110707
  Transmission Date: 20111222
  Serious: Yes (Hospitalization)
  Sender: FDA-Public Use
  Company Number: IT-PFIZER INC-2011139879

PATIENT
  Age: 75 Year
  Sex: Female

DRUGS (4)
  1. OXCARBAZEPINE [Concomitant]
     Dosage: 3 DOSAGE UNITS
     Route: 048
  2. TRAZODONE HCL [Concomitant]
     Dosage: 25 MG, UNK
     Route: 048
  3. ALPRAZOLAM EG [Concomitant]
     Dosage: 0.25 MG, UNK
     Route: 029
  4. EFFEXOR XR [Suspect]
     Indication: DEPRESSION
     Dosage: 75 MG DAILY
     Route: 048
     Dates: start: 20110427, end: 20110430

REACTIONS (3)
  - NIGHTMARE [None]
  - CONFUSIONAL STATE [None]
  - PSYCHOMOTOR HYPERACTIVITY [None]
